FAERS Safety Report 15015217 (Version 1)
Quarter: 2018Q2

REPORT INFORMATION
  Report Type: Spontaneous
  Country: TR (occurrence: TR)
  Receive Date: 20180615
  Receipt Date: 20180615
  Transmission Date: 20180711
  Serious: Yes (Death)
  Sender: FDA-Public Use
  Company Number: TR-HQ SPECIALTY-TR-2018INT000093

PATIENT

DRUGS (1)
  1. CISPLATIN. [Suspect]
     Active Substance: CISPLATIN
     Indication: NON-SMALL CELL LUNG CANCER
     Dosage: 80 MG/M2, DAY 1
     Route: 065

REACTIONS (2)
  - Toxicity to various agents [Fatal]
  - Aortic rupture [Fatal]
